FAERS Safety Report 24004935 (Version 1)
Quarter: 2024Q2

REPORT INFORMATION
  Report Type: Spontaneous
  Country: US (occurrence: None)
  Receive Date: 20240621
  Receipt Date: 20240621
  Transmission Date: 20240715
  Serious: Yes (Disabling)
  Sender: FDA-Public Use
  Company Number: None

PATIENT
  Age: 66 Year
  Sex: Female
  Weight: 128.7 kg

DRUGS (15)
  1. AUGMENTIN [Suspect]
     Active Substance: AMOXICILLIN\CLAVULANATE POTASSIUM
     Indication: Sinusitis
     Dates: start: 20230526, end: 20230531
  2. LEVOTHYROXINE [Concomitant]
     Active Substance: LEVOTHYROXINE\LEVOTHYROXINE SODIUM
  3. METFORMIN [Concomitant]
     Active Substance: METFORMIN HYDROCHLORIDE
  4. BAYER ASPIRIN [Concomitant]
     Active Substance: ASPIRIN
  5. VITAMIN D NOS [Concomitant]
     Active Substance: CHOLECALCIFEROL\ERGOCALCIFEROL
  6. VIT B SUPPLEMENT [Concomitant]
  7. SALMON FISH OIL [Concomitant]
  8. DIETARY SUPPLEMENT [Concomitant]
     Active Substance: DIETARY SUPPLEMENT
  9. PUREED GINGER [Concomitant]
  10. METAMUCIL [Concomitant]
     Active Substance: PLANTAGO SEED
  11. PROBIOTICS NOS [Concomitant]
     Active Substance: PROBIOTICS NOS
  12. MAGNESIUM [Concomitant]
     Active Substance: MAGNESIUM
  13. CALCIUM [Concomitant]
     Active Substance: CALCIUM
  14. INOSITOL [Concomitant]
     Active Substance: INOSITOL
  15. PRASTERONE [Concomitant]
     Active Substance: PRASTERONE

REACTIONS (8)
  - Muscular weakness [None]
  - Peripheral nerve lesion [None]
  - Hypoaesthesia [None]
  - Bursa injury [None]
  - Spinal disorder [None]
  - Exostosis [None]
  - Nerve compression [None]
  - Spinal stenosis [None]

NARRATIVE: CASE EVENT DATE: 20230526
